FAERS Safety Report 9971104 (Version 1)
Quarter: 2014Q1

REPORT INFORMATION
  Report Type: Report from Study
  Country: US (occurrence: US)
  Receive Date: 20140306
  Receipt Date: 20140306
  Transmission Date: 20141002
  Serious: No
  Sender: FDA-Public Use
  Company Number: US-ABBVIE-13P-163-1151948-00

PATIENT
  Sex: Female

DRUGS (6)
  1. HUMIRA [Suspect]
     Indication: CROHN^S DISEASE
     Dosage: DAY 1
  2. HUMIRA [Suspect]
     Dosage: DAY 2
  3. HUMIRA [Suspect]
     Dosage: DAY 15
  4. HUMIRA [Suspect]
     Dates: start: 20130924
  5. KEPPRA [Concomitant]
     Indication: CONVULSION
     Dosage: AT BEDTIME
  6. SULFASALAZINE [Concomitant]
     Indication: CROHN^S DISEASE

REACTIONS (8)
  - Device malfunction [Unknown]
  - Kidney infection [Not Recovered/Not Resolved]
  - Pyrexia [Unknown]
  - Nausea [Unknown]
  - Vomiting [Unknown]
  - Staphylococcal infection [Not Recovered/Not Resolved]
  - Wrong technique in drug usage process [Unknown]
  - Incorrect dose administered [Unknown]
